FAERS Safety Report 24764365 (Version 1)
Quarter: 2024Q4

REPORT INFORMATION
  Report Type: Spontaneous
  Country: US (occurrence: US)
  Receive Date: 20241223
  Receipt Date: 20241223
  Transmission Date: 20250115
  Serious: No
  Sender: APOTEX
  Company Number: US-APOTEX-2024AP020008

PATIENT

DRUGS (3)
  1. PRAVASTATIN [Suspect]
     Active Substance: PRAVASTATIN
     Indication: Product used for unknown indication
     Dosage: 1280 MILLIGRAM, QD (1-8 DAY)
     Route: 048
  2. CYTARABINE [Suspect]
     Active Substance: CYTARABINE
     Indication: Product used for unknown indication
     Dosage: (1.5 G/M(2) IV DAILY, DAYS 4-7)
     Route: 042
  3. IDARUBICIN [Suspect]
     Active Substance: IDARUBICIN
     Indication: Product used for unknown indication
     Dosage: 12 MILLIGRAM/SQ. METER, QD (DAYS 4-6)
     Route: 042

REACTIONS (2)
  - Infection [Unknown]
  - Off label use [Unknown]
